FAERS Safety Report 4449558-7 (Version None)
Quarter: 2004Q3

REPORT INFORMATION
  Report Type: 
  Country: None (occurrence: None)
  Receive Date: 20040913
  Receipt Date: 20040906
  Transmission Date: 20050211
  Serious: Yes (Life-Threatening)
  Sender: FDA-Public Use
  Company Number: 200409097

PATIENT

DRUGS (1)
  1. STREPTASE 1.5MIU (STREPTOKINASE) (ZLB BEHRING) [Suspect]

REACTIONS (3)
  - CARDIAC ARREST [None]
  - POST PROCEDURAL COMPLICATION [None]
  - VENTRICULAR FIBRILLATION [None]
